FAERS Safety Report 8224701-2 (Version None)
Quarter: 2012Q1

REPORT INFORMATION
  Report Type: 
  Country: None (occurrence: None)
  Receive Date: 20120321
  Receipt Date: 20120319
  Transmission Date: 20120608
  Serious: Yes (Hospitalization)
  Sender: FDA-Public Use
  Company Number: US-B.I. PHARMACEUTICALS,INC./RIDGEFIELD-2012-BP-05177BP

PATIENT
  Sex: Female

DRUGS (21)
  1. METNAX [Concomitant]
     Indication: VITAMIN SUPPLEMENTATION
  2. LANTUS [Concomitant]
     Indication: DIABETES MELLITUS
  3. ALPHAGAN [Concomitant]
     Indication: EYE DISORDER
  4. DUONEB [Concomitant]
     Indication: CHRONIC OBSTRUCTIVE PULMONARY DISEASE
  5. FEOSOL [Concomitant]
     Indication: MINERAL SUPPLEMENTATION
  6. LASIX [Concomitant]
     Indication: HYPERTENSION
  7. OXYGEN 5LTR RTC [Concomitant]
     Indication: CHRONIC OBSTRUCTIVE PULMONARY DISEASE
  8. ASPIRIN [Concomitant]
     Indication: ATRIAL FIBRILLATION
  9. PRADAXA [Suspect]
     Indication: ATRIAL FIBRILLATION
     Dosage: 300 MG
     Route: 048
     Dates: start: 20101001, end: 20110901
  10. DIGOXIN [Concomitant]
     Indication: ATRIAL FIBRILLATION
  11. TRAVETAM [Concomitant]
  12. NOVALOG INSULIN [Concomitant]
     Indication: DIABETES MELLITUS
  13. LASIX [Concomitant]
     Indication: CHRONIC OBSTRUCTIVE PULMONARY DISEASE
  14. ARANESP INJECTIONS [Concomitant]
     Indication: HAEMOGLOBIN DECREASED
  15. CARDIZEM [Concomitant]
     Indication: HYPERTENSION
  16. POTASSIUM [Concomitant]
     Indication: SUPPLEMENTATION THERAPY
  17. LUMIGEN [Concomitant]
     Indication: EYE DISORDER
  18. ALBUTEROL [Concomitant]
     Indication: CHRONIC OBSTRUCTIVE PULMONARY DISEASE
  19. DIOVAN [Concomitant]
     Indication: HYPERTENSION
  20. CYMBALTA [Concomitant]
  21. XANAX [Concomitant]
     Indication: ANXIETY

REACTIONS (1)
  - HAEMOGLOBIN DECREASED [None]
